FAERS Safety Report 19291334 (Version 1)
Quarter: 2021Q2

REPORT INFORMATION
  Report Type: Spontaneous
  Country: FR (occurrence: FR)
  Receive Date: 20210523
  Receipt Date: 20210523
  Transmission Date: 20210717
  Serious: Yes (Hospitalization)
  Sender: FDA-Public Use
  Company Number: FR-TEVA-2021-FR-1913146

PATIENT
  Age: 32 Year
  Sex: Male

DRUGS (7)
  1. DANTRIUM [Concomitant]
     Active Substance: DANTROLENE SODIUM
     Dosage: 1 DF
     Route: 048
     Dates: start: 20210330, end: 20210416
  2. VITAB [Concomitant]
     Dosage: 2 DF
     Route: 047
     Dates: start: 20210310
  3. MODERNA COVID?19 VACCINE [Suspect]
     Active Substance: CX-024414
     Indication: COVID-19 IMMUNISATION
     Dosage: 1 DF
     Route: 030
     Dates: start: 20210407, end: 20210407
  4. LANSOPRAZOLE. [Suspect]
     Active Substance: LANSOPRAZOLE
     Indication: GASTROOESOPHAGEAL REFLUX DISEASE
     Dosage: 30 MG , THERAPY END DATE : ASKU
     Route: 048
  5. LEVETIRA [Concomitant]
     Dosage: 2 G
     Route: 048
     Dates: start: 20210305
  6. ISTINE [Concomitant]
     Dosage: 16 MG
     Route: 048
     Dates: start: 20210308
  7. MICROPAK [Concomitant]
     Dosage: 4 DF
     Route: 048
     Dates: start: 20210308

REACTIONS (2)
  - Hypomagnesaemia [Unknown]
  - Generalised tonic-clonic seizure [Recovering/Resolving]

NARRATIVE: CASE EVENT DATE: 20210415
